FAERS Safety Report 12223064 (Version 4)
Quarter: 2016Q3

REPORT INFORMATION
  Report Type: Spontaneous
  Country: MX (occurrence: MX)
  Receive Date: 20160330
  Receipt Date: 20160712
  Transmission Date: 20161109
  Serious: Yes (Other)
  Sender: FDA-Public Use
  Company Number: MX-APOTEX-2016AP007376

PATIENT
  Age: 77 Year
  Sex: Female
  Weight: 80 kg

DRUGS (13)
  1. ZYLOPRIM [Concomitant]
     Active Substance: ALLOPURINOL
     Indication: PRODUCT USED FOR UNKNOWN INDICATION
     Dosage: 1 DF, AT MORNING
     Route: 048
  2. PLAQUENIL [Concomitant]
     Active Substance: HYDROXYCHLOROQUINE SULFATE
     Indication: PRODUCT USED FOR UNKNOWN INDICATION
     Dosage: UNK,EVERY THIRD DAY,3 YEARS AGO
     Route: 048
  3. GABAPENTIN. [Concomitant]
     Active Substance: GABAPENTIN
     Indication: PRODUCT USED FOR UNKNOWN INDICATION
     Dosage: 1 DF, Q.H.S.
     Route: 048
  4. NOVOTIRAL [Concomitant]
     Active Substance: LEVOTHYROXINE
     Indication: PRODUCT USED FOR UNKNOWN INDICATION
     Dosage: 1 DF, QD
     Route: 048
  5. ATACAND [Concomitant]
     Active Substance: CANDESARTAN CILEXETIL
     Indication: PRODUCT USED FOR UNKNOWN INDICATION
     Dosage: 0.5 DF IN THE MORNING, SINCE 3 YEARS AGO
     Route: 048
  6. ACETYLCYSTEINE. [Concomitant]
     Active Substance: ACETYLCYSTEINE
     Route: 065
  7. PAXIL [Suspect]
     Active Substance: PAROXETINE HYDROCHLORIDE
     Indication: DEMENTIA ALZHEIMER^S TYPE
     Dosage: 1 DF, QD, 1 TABLET EVERY THIRD DAY
     Route: 048
  8. EXELON [Suspect]
     Active Substance: RIVASTIGMINE TARTRATE
     Indication: DEMENTIA ALZHEIMER^S TYPE
     Dosage: 1 DF, QD
     Route: 003
  9. REMERON [Concomitant]
     Active Substance: MIRTAZAPINE
     Indication: PRODUCT USED FOR UNKNOWN INDICATION
     Dosage: 0.5 DF AT MORNING
     Route: 048
  10. CALCORT [Concomitant]
     Active Substance: DEFLAZACORT
     Indication: PRODUCT USED FOR UNKNOWN INDICATION
     Dosage: 0.5 DF, QD, 3 YEARS AGO
     Route: 048
  11. LEXOTAN [Concomitant]
     Active Substance: BROMAZEPAM
     Indication: PRODUCT USED FOR UNKNOWN INDICATION
     Dosage: UNK
     Route: 048
  12. ULSEN [Concomitant]
     Active Substance: OMEPRAZOLE
     Indication: PRODUCT USED FOR UNKNOWN INDICATION
     Dosage: UNK, 1 AT MORNING
     Route: 048
  13. IMURAN [Concomitant]
     Active Substance: AZATHIOPRINE
     Indication: PRODUCT USED FOR UNKNOWN INDICATION
     Dosage: 1 DF, AT MORNING
     Route: 048

REACTIONS (13)
  - Blindness [Not Recovered/Not Resolved]
  - Decreased appetite [Not Recovered/Not Resolved]
  - Impaired reasoning [Not Recovered/Not Resolved]
  - Fibrosis [Unknown]
  - Cataract [Not Recovered/Not Resolved]
  - General physical health deterioration [Not Recovered/Not Resolved]
  - Arthropathy [Not Recovered/Not Resolved]
  - Weight increased [Recovered/Resolved]
  - Arthritis [Not Recovered/Not Resolved]
  - Rheumatic disorder [Not Recovered/Not Resolved]
  - Amnesia [Unknown]
  - Product use issue [Unknown]
  - Somnolence [Recovering/Resolving]

NARRATIVE: CASE EVENT DATE: 20160223
